FAERS Safety Report 17544327 (Version 2)
Quarter: 2020Q1

REPORT INFORMATION
  Report Type: Spontaneous
  Country: US (occurrence: US)
  Receive Date: 20200316
  Receipt Date: 20200327
  Transmission Date: 20200409
  Serious: Yes (Life-Threatening, Hospitalization, Other)
  Sender: FDA-Public Use
  Company Number: US-JNJFOC-20200303109

PATIENT
  Age: 53 Year
  Sex: Male

DRUGS (4)
  1. LEVAQUIN [Suspect]
     Active Substance: LEVOFLOXACIN
     Indication: KIDNEY INFECTION
     Route: 048
     Dates: start: 201505, end: 201505
  2. LEVOFLOXACIN. [Suspect]
     Active Substance: LEVOFLOXACIN
     Indication: KIDNEY INFECTION
     Route: 042
  3. METFORMIN [Concomitant]
     Active Substance: METFORMIN HYDROCHLORIDE
     Indication: DIABETES MELLITUS
  4. GLIPIZIDE. [Concomitant]
     Active Substance: GLIPIZIDE
     Indication: DIABETES MELLITUS

REACTIONS (11)
  - Back pain [Unknown]
  - Hepatic cirrhosis [Unknown]
  - Diabetes mellitus [Unknown]
  - Stevens-Johnson syndrome [Unknown]
  - Mental disorder [Unknown]
  - Fatigue [Unknown]
  - Off label use [Unknown]
  - Product use in unapproved indication [Unknown]
  - Loss of consciousness [Unknown]
  - Neuropathy peripheral [Unknown]
  - Hepatic failure [Unknown]

NARRATIVE: CASE EVENT DATE: 2015
